FAERS Safety Report 7791591-1 (Version None)
Quarter: 2011Q3

REPORT INFORMATION
  Report Type: 
  Country: None (occurrence: None)
  Receive Date: 20110930
  Receipt Date: 20110930
  Transmission Date: 20111222
  Serious: Yes (Life-Threatening, Hospitalization)
  Sender: FDA-Public Use
  Company Number: None

PATIENT
  Age: 58 Year
  Sex: Female
  Weight: 77.3 kg

DRUGS (1)
  1. SOMAVERT [Suspect]
     Indication: ACROMEGALY
     Dosage: 10 MG DAILY SUBQ
     Route: 058

REACTIONS (5)
  - JAUNDICE [None]
  - HEPATIC FUNCTION ABNORMAL [None]
  - HEPATOTOXICITY [None]
  - ACROMEGALY [None]
  - DISEASE RECURRENCE [None]
